FAERS Safety Report 10580980 (Version 1)
Quarter: 2014Q4

REPORT INFORMATION
  Report Type: Spontaneous
  Country: US (occurrence: None)
  Receive Date: 20141112
  Receipt Date: 20141112
  Transmission Date: 20150529
  Serious: No
  Sender: FDA-Public Use
  Company Number: None

PATIENT
  Age: 60 Year
  Sex: Male

DRUGS (1)
  1. STIVARGA [Suspect]
     Active Substance: REGORAFENIB
     Indication: COLON CANCER
     Dosage: 160MG, DAILY FOR 21 DAYS, BY MOUTH
     Route: 048
     Dates: start: 20141017, end: 20141028

REACTIONS (4)
  - Rash [None]
  - Blood pressure increased [None]
  - Oropharyngeal pain [None]
  - Dry mouth [None]

NARRATIVE: CASE EVENT DATE: 20141028
